FAERS Safety Report 19121884 (Version 4)
Quarter: 2022Q2

REPORT INFORMATION
  Report Type: Spontaneous
  Country: BR (occurrence: BR)
  Receive Date: 20210412
  Receipt Date: 20220628
  Transmission Date: 20220720
  Serious: Yes (Hospitalization)
  Sender: FDA-Public Use
  Company Number: BR-GLAXOSMITHKLINE-BR2021AMR041190

PATIENT

DRUGS (3)
  1. NUCALA [Suspect]
     Active Substance: MEPOLIZUMAB
     Indication: Asthma
     Dosage: 100 MG/ML, Z(EVERY 4 WEEKS)
     Dates: start: 20201215
  2. NUCALA [Suspect]
     Active Substance: MEPOLIZUMAB
     Dosage: 100 MG/ML, Z(EVERY 4 WEEKS)
     Dates: start: 20210112, end: 20210209
  3. NUCALA [Suspect]
     Active Substance: MEPOLIZUMAB
     Dosage: UNK
     Dates: start: 20210112

REACTIONS (30)
  - Pain [Unknown]
  - Pyrexia [Recovering/Resolving]
  - Dengue fever [Not Recovered/Not Resolved]
  - Dyspnoea [Recovered/Resolved]
  - Skin haemorrhage [Unknown]
  - Nausea [Not Recovered/Not Resolved]
  - General physical health deterioration [Unknown]
  - Back pain [Recovered/Resolved]
  - Diarrhoea [Recovered/Resolved]
  - Platelet count decreased [Unknown]
  - Pain of skin [Unknown]
  - Rash [Unknown]
  - Skin wound [Not Recovered/Not Resolved]
  - Decreased appetite [Recovering/Resolving]
  - Feeling abnormal [Unknown]
  - Skin disorder [Unknown]
  - Ill-defined disorder [Unknown]
  - Skin discolouration [Unknown]
  - Skin discharge [Unknown]
  - Purulent discharge [Unknown]
  - Pruritus [Unknown]
  - Condition aggravated [Unknown]
  - Illness [Unknown]
  - Drug ineffective [Unknown]
  - Therapeutic response unexpected [Unknown]
  - Skin lesion [Unknown]
  - Blood immunoglobulin E increased [Unknown]
  - Social problem [Unknown]
  - Product dose omission issue [Unknown]
  - Product complaint [Unknown]

NARRATIVE: CASE EVENT DATE: 20210207
